FAERS Safety Report 9830048 (Version 1)
Quarter: 2014Q1

REPORT INFORMATION
  Report Type: Spontaneous
  Country: US (occurrence: US)
  Receive Date: 20140120
  Receipt Date: 20140120
  Transmission Date: 20141002
  Serious: Yes (Other)
  Sender: FDA-Public Use
  Company Number: US-BAYER-2014-005963

PATIENT
  Age: 65 Year
  Sex: Female

DRUGS (2)
  1. BAYER WOMEN^S LOW STRENGTH ASPIRIN REGIMEN [Suspect]
     Indication: BLOOD CHOLESTEROL INCREASED
     Dosage: 1 DF, PRN
     Route: 048
  2. BAYER WOMEN^S LOW STRENGTH ASPIRIN REGIMEN [Suspect]
     Indication: CHEST PAIN
     Dosage: 1 DF, PRN

REACTIONS (2)
  - Rectal haemorrhage [Recovered/Resolved]
  - Expired drug administered [None]
